FAERS Safety Report 12095047 (Version 1)
Quarter: 2016Q1

REPORT INFORMATION
  Report Type: Spontaneous
  Country: DE (occurrence: DE)
  Receive Date: 20160219
  Receipt Date: 20160219
  Transmission Date: 20160526
  Serious: No
  Sender: FDA-Public Use
  Company Number: DE-PERNIX THERAPEUTICS-2015PT000285

PATIENT

DRUGS (1)
  1. KEIMAX [Suspect]
     Active Substance: CEFTIBUTEN
     Indication: THERAPY RESPONDER
     Dosage: UNK
     Route: 048

REACTIONS (1)
  - Vomiting [Unknown]
